FAERS Safety Report 16233985 (Version 1)
Quarter: 2019Q2

REPORT INFORMATION
  Report Type: Spontaneous
  Country: FR (occurrence: FR)
  Receive Date: 20190424
  Receipt Date: 20190424
  Transmission Date: 20190711
  Serious: Yes (Hospitalization)
  Sender: FDA-Public Use
  Company Number: FR-NAPPMUNDI-GBR-2019-0066066

PATIENT
  Age: 43 Year
  Sex: Male
  Weight: 99.1 kg

DRUGS (21)
  1. OXYNORMORO [Suspect]
     Active Substance: OXYCODONE HYDROCHLORIDE
     Indication: PAIN
     Dosage: UNK
     Route: 048
     Dates: start: 2017, end: 20190315
  2. PHLOROGLUCINOL [Suspect]
     Active Substance: PHLOROGLUCINOL
     Indication: ABDOMINAL PAIN
     Dosage: 6 DF, DAILY
     Route: 042
     Dates: start: 20190309, end: 20190315
  3. LAROXYL [Suspect]
     Active Substance: AMITRIPTYLINE HYDROCHLORIDE
     Indication: PAIN
     Dosage: 4 DF, DAILY
     Route: 048
     Dates: start: 20180205, end: 20190314
  4. SALBUTAMOL [Concomitant]
     Active Substance: ALBUTEROL
  5. IFOSFAMIDE. [Suspect]
     Active Substance: IFOSFAMIDE
     Indication: B-CELL LYMPHOMA
     Dosage: 5000 MG/M2, TOTAL
     Route: 042
     Dates: start: 20190313, end: 20190313
  6. ORACILLINE                         /00001801/ [Concomitant]
     Active Substance: PENICILLIN V
  7. ALFUZOSINE HCL [Concomitant]
     Active Substance: ALFUZOSIN HYDROCHLORIDE
  8. ETOPOPHOS [Suspect]
     Active Substance: ETOPOSIDE PHOSPHATE
     Indication: B-CELL LYMPHOMA
     Dosage: 100 MG/M2, DAILY
     Route: 042
     Dates: start: 20190312, end: 20190314
  9. IPRATROPIUM                        /00391402/ [Suspect]
     Active Substance: IPRATROPIUM BROMIDE
     Indication: PRODUCT USED FOR UNKNOWN INDICATION
     Dosage: 4 DF, DAILY
     Route: 055
     Dates: start: 20190309, end: 20190314
  10. MOVICOL [Concomitant]
     Active Substance: POLYETHYLENE GLYCOL 3350\POTASSIUM CHLORIDE\SODIUM BICARBONATE\SODIUM CHLORIDE
  11. PANTOPRAZOLE [Concomitant]
     Active Substance: PANTOPRAZOLE
  12. CARBOPLATINE [Suspect]
     Active Substance: CARBOPLATIN
     Indication: B-CELL LYMPHOMA
     Dosage: 5 MG/ML, MINUTE
     Route: 042
     Dates: start: 20190313, end: 20190313
  13. TRIMEBUTINE MALEATE [Suspect]
     Active Substance: TRIMEBUTINE MALEATE
     Indication: ABDOMINAL PAIN
     Dosage: 6 DF, DAILY
     Route: 042
     Dates: start: 20190309, end: 20190314
  14. PARACETAMOL [Concomitant]
     Active Substance: ACETAMINOPHEN
  15. ALLOPURINOL. [Concomitant]
     Active Substance: ALLOPURINOL
  16. MABTHERA [Suspect]
     Active Substance: RITUXIMAB
     Indication: B-CELL LYMPHOMA
     Dosage: 375 MG/M2, TOTAL
     Route: 042
     Dates: start: 20190312, end: 20190312
  17. KARDEGIC [Concomitant]
     Active Substance: ASPIRIN DL-LYSINE
  18. PREGABALIN. [Concomitant]
     Active Substance: PREGABALIN
  19. OXYCODONE [Suspect]
     Active Substance: OXYCODONE
     Indication: PAIN
     Dosage: 170 MG, DAILY
     Route: 048
     Dates: start: 2017, end: 20190315
  20. ONDANSETRON                        /00955302/ [Suspect]
     Active Substance: ONDANSETRON HYDROCHLORIDE
     Indication: NAUSEA
     Dosage: 2 DF, DAILY
     Route: 042
     Dates: start: 20190309, end: 20190314
  21. MESNA. [Suspect]
     Active Substance: MESNA
     Indication: PROPHYLAXIS
     Dosage: 5000 MG/M2, TOTAL
     Route: 042
     Dates: start: 20190313, end: 20190313

REACTIONS (1)
  - Encephalopathy [Recovered/Resolved]

NARRATIVE: CASE EVENT DATE: 20190314
